FAERS Safety Report 7999035-1 (Version None)
Quarter: 2011Q4

REPORT INFORMATION
  Report Type: 
  Country: None (occurrence: None)
  Receive Date: 20111221
  Receipt Date: 20111028
  Transmission Date: 20120403
  Serious: Yes (Death, Other)
  Sender: FDA-Public Use
  Company Number: US-PURDUE-USA-2008-0033395

PATIENT
  Sex: Male

DRUGS (9)
  1. OXYCONTIN [Suspect]
     Indication: PAIN MANAGEMENT
     Dosage: 30 UNK, UNK
     Dates: start: 20060823, end: 20070228
  2. OXYCONTIN [Suspect]
     Indication: BACK PAIN
  3. SEROQUEL [Suspect]
     Indication: PRODUCT USED FOR UNKNOWN INDICATION
     Dosage: 300 MG, DAILY
  4. KLONOPIN [Suspect]
     Indication: PRODUCT USED FOR UNKNOWN INDICATION
     Dosage: 2 MG, SEE TEXT
  5. PROTONIX [Suspect]
     Indication: PRODUCT USED FOR UNKNOWN INDICATION
     Dosage: 40 MG, SEE TEXT
  6. OXYCONTIN [Suspect]
     Indication: PAIN
     Dosage: 20 MG, BID
     Dates: start: 20020101, end: 20070227
  7. XANAX [Suspect]
     Indication: PRODUCT USED FOR UNKNOWN INDICATION
     Dosage: 2 MG, SEE TEXT
  8. PAXIL [Suspect]
     Indication: PRODUCT USED FOR UNKNOWN INDICATION
     Dosage: 20 MG, HS
  9. OXYCODONE HCL [Suspect]
     Indication: BREAKTHROUGH PAIN
     Dosage: 5 MG, Q4H PRN

REACTIONS (17)
  - UNRESPONSIVE TO STIMULI [None]
  - PAIN [None]
  - PRURITUS ALLERGIC [None]
  - MULTIPLE DRUG OVERDOSE INTENTIONAL [None]
  - INTENTIONAL DRUG MISUSE [None]
  - SEDATION [None]
  - ANXIETY [None]
  - DRUG HYPERSENSITIVITY [None]
  - DRUG DEPENDENCE [None]
  - DRUG ABUSE [None]
  - DRUG WITHDRAWAL SYNDROME [None]
  - INADEQUATE ANALGESIA [None]
  - PARANOIA [None]
  - DELUSIONAL DISORDER, UNSPECIFIED TYPE [None]
  - OBSESSIVE-COMPULSIVE DISORDER [None]
  - ANHEDONIA [None]
  - DEPRESSION [None]
